FAERS Safety Report 10378106 (Version 1)
Quarter: 2014Q3

REPORT INFORMATION
  Report Type: Spontaneous
  Country: MX (occurrence: None)
  Receive Date: 20140807
  Receipt Date: 20140807
  Transmission Date: 20150326
  Serious: Yes (Other)
  Sender: FDA-Public Use
  Company Number: KAD201408-000873

PATIENT
  Age: 64 Year
  Sex: Male

DRUGS (6)
  1. BMS 914143 (PEGINTERFERON LAMBDA-1A) [Suspect]
     Active Substance: PEGINTERFERON LAMBDA-1A
     Indication: CHRONIC HEPATITIS C
     Route: 058
     Dates: start: 20130509, end: 20130518
  2. OMEPRAZOLE (OMEPRAZOLE) (OMEPRAZOLE) [Concomitant]
     Active Substance: OMEPRAZOLE
     Indication: CHRONIC HEPATITIS C
     Route: 048
     Dates: start: 20130509, end: 20130518
  3. RIBAVIRIN (RIBAVIRIN) [Suspect]
     Active Substance: RIBAVIRIN
     Indication: CHRONIC HEPATITIS C
     Route: 048
     Dates: start: 20130509, end: 20130518
  4. PLACEBO [Suspect]
     Active Substance: UNSPECIFIED INGREDIENT
     Indication: CHRONIC HEPATITIS C
     Route: 048
     Dates: start: 20130509, end: 20130518
  5. RANITIDINE (RANIDITIDINE) (RANITIDINE) [Concomitant]
  6. RIOPAN (MAGALDRATE) (MAGALDRATE) [Concomitant]

REACTIONS (6)
  - Headache [None]
  - Weight decreased [None]
  - Jaundice [None]
  - Arthralgia [None]
  - Hypophagia [None]
  - Hepatitis A antibody positive [None]

NARRATIVE: CASE EVENT DATE: 20130516
